FAERS Safety Report 5862828-0 (Version None)
Quarter: 2008Q3

REPORT INFORMATION
  Report Type: 
  Country: None (occurrence: None)
  Receive Date: 20080828
  Receipt Date: 20080821
  Transmission Date: 20090109
  Serious: Yes (Hospitalization, Other)
  Sender: FDA-Public Use
  Company Number: US-AMGEN-QUU301543

PATIENT
  Sex: Female

DRUGS (13)
  1. ENBREL [Suspect]
     Indication: PSORIASIS
     Route: 058
     Dates: start: 20030122
  2. ZOCOR [Concomitant]
  3. ZYRTEC [Concomitant]
  4. ADVAIR DISKUS 100/50 [Concomitant]
  5. FOSAMAX [Concomitant]
  6. PLAVIX [Concomitant]
     Dates: end: 20080625
  7. GLUCOTROL [Concomitant]
  8. TOPROL-XL [Concomitant]
  9. PLENDIL [Concomitant]
  10. HYZAAR [Concomitant]
  11. CLONIDINE [Concomitant]
  12. TRIAMCINOLONE [Concomitant]
     Route: 061
  13. LOTRISONE [Concomitant]
     Route: 061

REACTIONS (3)
  - INTERSTITIAL LUNG DISEASE [None]
  - PROCEDURAL HYPERTENSION [None]
  - PULMONARY FIBROSIS [None]
